FAERS Safety Report 4313410-8 (Version None)
Quarter: 2004Q1

REPORT INFORMATION
  Report Type: 
  Country: None (occurrence: None)
  Receive Date: 20040304
  Receipt Date: 20040217
  Transmission Date: 20041129
  Serious: Yes (Death, Hospitalization)
  Sender: FDA-Public Use
  Company Number: 160146

PATIENT
  Age: 55 Year
  Sex: Male

DRUGS (1)
  1. AVONEX [Suspect]
     Indication: MULTIPLE SCLEROSIS
     Dosage: 30 MCG QW IM
     Route: 030
     Dates: start: 20020307, end: 20020307

REACTIONS (18)
  - ABDOMINAL DISTENSION [None]
  - ACUTE RESPIRATORY DISTRESS SYNDROME [None]
  - ANOREXIA [None]
  - COMA [None]
  - COUGH [None]
  - CYANOSIS [None]
  - DRUG INEFFECTIVE [None]
  - HEPATIC FAILURE [None]
  - MARKEDLY REDUCED DIETARY INTAKE [None]
  - METABOLIC ACIDOSIS [None]
  - MULTI-ORGAN FAILURE [None]
  - OEDEMA [None]
  - PSEUDOMONAS INFECTION [None]
  - PULSE ABSENT [None]
  - SEPSIS [None]
  - SHOCK [None]
  - TACHYPNOEA [None]
  - URINARY TRACT INFECTION [None]
